FAERS Safety Report 24532003 (Version 1)
Quarter: 2024Q4

REPORT INFORMATION
  Report Type: Spontaneous
  Country: US (occurrence: US)
  Receive Date: 20241022
  Receipt Date: 20241022
  Transmission Date: 20250114
  Serious: Yes (Death, Life-Threatening, Hospitalization, Other)
  Sender: SANDOZ
  Company Number: US-MLMSERVICE-20180420-1053973-1

PATIENT
  Age: 47 Year
  Sex: Male

DRUGS (9)
  1. BASILIXIMAB [Suspect]
     Active Substance: BASILIXIMAB
     Indication: Renal and liver transplant
     Dosage: UNK
     Route: 065
  2. BASILIXIMAB [Suspect]
     Active Substance: BASILIXIMAB
     Indication: Immunosuppressant drug therapy
  3. MYCOPHENOLATE MOFETIL [Suspect]
     Active Substance: MYCOPHENOLATE MOFETIL
     Indication: Renal and liver transplant
     Dosage: UNK
     Route: 065
  4. MYCOPHENOLATE MOFETIL [Suspect]
     Active Substance: MYCOPHENOLATE MOFETIL
     Indication: Immunosuppressant drug therapy
  5. TACROLIMUS [Suspect]
     Active Substance: TACROLIMUS
     Indication: Renal and liver transplant
     Dosage: UNK
     Route: 065
  6. TACROLIMUS [Suspect]
     Active Substance: TACROLIMUS
     Indication: Immunosuppressant drug therapy
  7. ACYCLOVIR [Concomitant]
     Active Substance: ACYCLOVIR
     Indication: Antibiotic prophylaxis
     Route: 065
  8. ATOVAQUONE [Concomitant]
     Active Substance: ATOVAQUONE
     Indication: Antibiotic prophylaxis
     Route: 065
  9. FLUCONAZOLE [Concomitant]
     Active Substance: FLUCONAZOLE
     Indication: Antibiotic prophylaxis
     Route: 065

REACTIONS (10)
  - Disseminated mucormycosis [Fatal]
  - Pancytopenia [Fatal]
  - Acute kidney injury [Unknown]
  - Pyrexia [Fatal]
  - Abdominal pain [Fatal]
  - Diarrhoea [Fatal]
  - Failure to thrive [Fatal]
  - Flat affect [Fatal]
  - Skin plaque [Fatal]
  - Tremor [Fatal]
